FAERS Safety Report 5567994-2 (Version None)
Quarter: 2007Q4

REPORT INFORMATION
  Report Type: 
  Country: None (occurrence: None)
  Receive Date: 20071218
  Receipt Date: 20071204
  Transmission Date: 20080405
  Serious: Yes (Life-Threatening, Hospitalization)
  Sender: FDA-Public Use
  Company Number: 2007AP001430

PATIENT
  Age: 24 Year
  Sex: Female

DRUGS (13)
  1. LITHIUM CARBONATE [Suspect]
     Dosage: PO; PO
     Route: 048
     Dates: end: 20070608
  2. LITHIUM CARBONATE [Suspect]
     Dosage: PO; PO
     Route: 048
     Dates: start: 20070101
  3. VENLAFAXINE HCL [Suspect]
     Dates: end: 20070608
  4. VENLAFAXINE HCL [Suspect]
     Dates: start: 20070101
  5. ESZOPICLONE [Suspect]
     Dates: end: 20070608
  6. ESZOPICLONE [Suspect]
     Dates: start: 20070101
  7. QUETIAPINE FUMARATE [Suspect]
     Dates: end: 20070608
  8. QUETIAPINE FUMARATE [Suspect]
     Dates: start: 20070101
  9. CHLORPROMAZINE [Suspect]
     Dates: end: 20070608
  10. CHLORPROMAZINE [Suspect]
     Dates: start: 20070101
  11. TOPIRAMATE [Suspect]
     Dates: end: 20070608
  12. CLOZAPINE [Concomitant]
  13. CLONAZEPAM [Concomitant]

REACTIONS (7)
  - ACUTE RESPIRATORY DISTRESS SYNDROME [None]
  - ASPIRATION [None]
  - DEPRESSED LEVEL OF CONSCIOUSNESS [None]
  - DEPRESSION [None]
  - DISEASE RECURRENCE [None]
  - MULTIPLE DRUG OVERDOSE [None]
  - WEIGHT INCREASED [None]
